FAERS Safety Report 8916285 (Version 1)
Quarter: 2012Q4

REPORT INFORMATION
  Report Type: 
  Country: US (occurrence: US)
  Receive Date: 20121120
  Receipt Date: 20121120
  Transmission Date: 20130627
  Serious: No
  Sender: FDA-Public Use
  Company Number: US-MYLANLABS-2012S1001921

PATIENT
  Age: 55 Year
  Sex: Female

DRUGS (10)
  1. ALLOPURINOL TABLETS, USP [Suspect]
     Indication: GOUT
     Dates: start: 20120116, end: 20120119
  2. LISINOPRIL [Concomitant]
  3. METOPROLOL SUCCINATE [Concomitant]
  4. LOVASTATIN [Concomitant]
  5. SINGULAIR [Concomitant]
  6. SYNTHROID [Concomitant]
  7. EVISTA [Concomitant]
  8. FLUOXETINE [Concomitant]
  9. FISH OIL [Concomitant]
  10. CLARITIN /00917501/ [Concomitant]

REACTIONS (5)
  - Heart rate increased [Recovered/Resolved]
  - Hyperhidrosis [Recovered/Resolved]
  - Fatigue [Recovered/Resolved]
  - Asthenia [Recovered/Resolved]
  - Discomfort [Recovered/Resolved]
